FAERS Safety Report 14404839 (Version 2)
Quarter: 2018Q1

REPORT INFORMATION
  Report Type: Report from Study
  Country: US (occurrence: US)
  Receive Date: 20180118
  Receipt Date: 20180308
  Transmission Date: 20180509
  Serious: Yes (Other)
  Sender: FDA-Public Use
  Company Number: PHEH2018US001775

PATIENT
  Sex: Female

DRUGS (1)
  1. COSENTYX [Suspect]
     Active Substance: SECUKINUMAB
     Indication: ANKYLOSING SPONDYLITIS
     Dosage: 150 MG, QMO
     Route: 058

REACTIONS (6)
  - Nasopharyngitis [Unknown]
  - Feeling abnormal [Unknown]
  - Ankylosing spondylitis [Unknown]
  - Drug ineffective [Unknown]
  - Malaise [Unknown]
  - Pain [Unknown]
